FAERS Safety Report 10237420 (Version 3)
Quarter: 2015Q4

REPORT INFORMATION
  Report Type: Report from Study
  Country: JP (occurrence: JP)
  Receive Date: 20140614
  Receipt Date: 20151116
  Transmission Date: 20160304
  Serious: Yes (Life-Threatening, Hospitalization, Other)
  Sender: FDA-Public Use
  Company Number: JP-ALEXION PHARMACEUTICALS INC.-A201402285

PATIENT
  Age: 4 Month
  Sex: Male
  Weight: 4.5 kg

DRUGS (48)
  1. ZOSYN [Concomitant]
     Active Substance: PIPERACILLIN SODIUM\TAZOBACTAM SODIUM
     Indication: INFECTION PROPHYLAXIS
     Dosage: 500 MG, TID
     Route: 065
     Dates: start: 20140511, end: 20140518
  2. VANCOMYCIN [Concomitant]
     Active Substance: VANCOMYCIN
     Indication: INFECTION PROPHYLAXIS
     Dosage: 70 MG, TID
     Route: 065
     Dates: start: 20140516, end: 20140519
  3. MEROPEN                            /01250501/ [Concomitant]
     Active Substance: MEROPENEM
     Dosage: 180 MG, TID
     Route: 065
     Dates: start: 20140528, end: 20140602
  4. VFEND [Concomitant]
     Active Substance: VORICONAZOLE
     Indication: INFECTION PROPHYLAXIS
     Dosage: 13 MG, BID
     Route: 065
     Dates: start: 20140614, end: 20140616
  5. CEFTAZIDIME. [Concomitant]
     Active Substance: CEFTAZIDIME
     Indication: INFECTION PROPHYLAXIS
     Dosage: 250 MG, BID
     Route: 065
     Dates: start: 20140616, end: 20140622
  6. MINIPRES [Concomitant]
     Active Substance: PRAZOSIN HYDROCHLORIDE
     Indication: PRODUCT USED FOR UNKNOWN INDICATION
     Dosage: 0.15 MG, QD
     Route: 048
     Dates: start: 20140508, end: 20140609
  7. FUROSEMIDE. [Concomitant]
     Active Substance: FUROSEMIDE
     Dosage: 9.00 MG, TID
     Dates: start: 20140509, end: 20140510
  8. PREDONINE [Concomitant]
     Active Substance: PREDNISOLONE\PREDNISOLONE ACETATE\PREDNISOLONE SODIUM SUCCINATE
     Dosage: 2.5 MG, BID
     Route: 042
     Dates: start: 20140521, end: 20140521
  9. SOLIRIS [Suspect]
     Active Substance: ECULIZUMAB
     Dosage: UNK
     Route: 042
     Dates: start: 20141020
  10. MEROPEN                            /01250501/ [Concomitant]
     Active Substance: MEROPENEM
     Dosage: 180 MG, TID
     Route: 065
     Dates: start: 20140606, end: 20140611
  11. BACTAR [Concomitant]
     Active Substance: SULFAMERAZINE\TRIMETHOPRIM
     Indication: INFECTION PROPHYLAXIS
     Dosage: 0.2 G, BID
     Route: 048
     Dates: start: 20140515, end: 20141024
  12. NORVASK                            /00972401/ [Concomitant]
     Indication: PRODUCT USED FOR UNKNOWN INDICATION
     Dosage: 2.5 MG, QD
     Route: 042
     Dates: start: 20140502, end: 20140614
  13. DORNER [Concomitant]
     Active Substance: BERAPROST SODIUM
     Indication: PRODUCT USED FOR UNKNOWN INDICATION
     Dosage: 5 ?G, TID
     Route: 048
     Dates: start: 20140608
  14. TRACLEER [Concomitant]
     Active Substance: BOSENTAN
     Indication: PRODUCT USED FOR UNKNOWN INDICATION
     Dosage: 6.25 MG, TID
     Route: 048
     Dates: start: 20140620
  15. RECOMODULIN [Concomitant]
     Active Substance: THROMBOMODULIN ALFA
     Dosage: 1920 IU, QD
     Route: 042
     Dates: start: 20140415, end: 20140417
  16. SOLIRIS [Suspect]
     Active Substance: ECULIZUMAB
     Indication: HAEMOLYTIC URAEMIC SYNDROME
     Dosage: 300 MG, QW
     Route: 042
     Dates: start: 20140502, end: 20140502
  17. SOLIRIS [Suspect]
     Active Substance: ECULIZUMAB
     Dosage: 300 MG, Q3WEEKS
     Route: 042
     Dates: start: 20140509, end: 20140530
  18. CELLCEPT [Concomitant]
     Active Substance: MYCOPHENOLATE MOFETIL\MYCOPHENOLATE MOFETIL HYDROCHLORIDE
     Dosage: 150 MG, BID
     Route: 048
     Dates: start: 20140903, end: 20141204
  19. FUROSEMIDE. [Concomitant]
     Active Substance: FUROSEMIDE
     Dosage: 1.00 MG/H, CONTINUANCE
     Route: 042
     Dates: start: 20140518, end: 20140518
  20. NICARDIPINE [Concomitant]
     Active Substance: NICARDIPINE
     Indication: PRODUCT USED FOR UNKNOWN INDICATION
     Dosage: 0.3 UNK, UNK
     Route: 042
     Dates: start: 20140425, end: 20140518
  21. PREDONINE [Concomitant]
     Active Substance: PREDNISOLONE\PREDNISOLONE ACETATE\PREDNISOLONE SODIUM SUCCINATE
     Indication: GRAFT VERSUS HOST DISEASE
     Dosage: 2.5 MG, BID
     Route: 042
     Dates: start: 20140401, end: 20140411
  22. CEFMETAZOLE NA [Concomitant]
     Indication: INFECTION PROPHYLAXIS
     Dosage: 200 MG, QD
     Route: 065
     Dates: start: 20140424, end: 20140502
  23. TARGOCID [Concomitant]
     Active Substance: TEICOPLANIN
     Indication: INFECTION PROPHYLAXIS
     Dosage: 20 MG, BID
     Route: 065
     Dates: start: 20140607, end: 20140610
  24. CELLCEPT [Concomitant]
     Active Substance: MYCOPHENOLATE MOFETIL\MYCOPHENOLATE MOFETIL HYDROCHLORIDE
     Indication: PRODUCT USED FOR UNKNOWN INDICATION
     Dosage: 100 MG, TID
     Route: 048
     Dates: start: 20140815, end: 20140902
  25. FUROSEMIDE. [Concomitant]
     Active Substance: FUROSEMIDE
     Dosage: 9.00 MG, TID
     Route: 042
     Dates: start: 20140516, end: 20140517
  26. FUNGUARD [Concomitant]
     Active Substance: MICAFUNGIN SODIUM
     Indication: INFECTION PROPHYLAXIS
     Dosage: 25 MG, QD
     Route: 065
     Dates: start: 20140616, end: 20140625
  27. REVATIO [Concomitant]
     Active Substance: SILDENAFIL CITRATE
     Indication: PRODUCT USED FOR UNKNOWN INDICATION
     Dosage: 4.5 MG, TID
     Route: 048
     Dates: start: 20140609
  28. PREDONINE [Concomitant]
     Active Substance: PREDNISOLONE\PREDNISOLONE ACETATE\PREDNISOLONE SODIUM SUCCINATE
     Indication: PRODUCT USED FOR UNKNOWN INDICATION
     Dosage: 2.5 MG, QD
     Route: 048
     Dates: start: 20140524, end: 20140525
  29. PREDONINE [Concomitant]
     Active Substance: PREDNISOLONE\PREDNISOLONE ACETATE\PREDNISOLONE SODIUM SUCCINATE
     Dosage: 1 MG, UNK
     Route: 048
     Dates: start: 20140526, end: 20140605
  30. PREDONINE [Concomitant]
     Active Substance: PREDNISOLONE\PREDNISOLONE ACETATE\PREDNISOLONE SODIUM SUCCINATE
     Dosage: 2.5 MG, BID
     Route: 042
     Dates: start: 20140427, end: 20140427
  31. PREDONINE [Concomitant]
     Active Substance: PREDNISOLONE\PREDNISOLONE ACETATE\PREDNISOLONE SODIUM SUCCINATE
     Dosage: 2.5 MG, BID
     Route: 042
     Dates: start: 20140430, end: 20140430
  32. MEROPEN                            /01250501/ [Concomitant]
     Active Substance: MEROPENEM
     Indication: INFECTION PROPHYLAXIS
     Dosage: 180 MG, TID
     Route: 065
     Dates: start: 20140517, end: 20140522
  33. FUROSEMIDE. [Concomitant]
     Active Substance: FUROSEMIDE
     Indication: RENAL IMPAIRMENT
     Dosage: 0.9 MG, QID
     Route: 042
     Dates: start: 20140503, end: 20140508
  34. ZOSYN [Concomitant]
     Active Substance: PIPERACILLIN SODIUM\TAZOBACTAM SODIUM
     Dosage: 500 MG, TID
     Route: 065
     Dates: start: 20140613, end: 20140616
  35. FUROSEMIDE. [Concomitant]
     Active Substance: FUROSEMIDE
     Dosage: 1.20 MGH, CONTINUANCE
     Route: 042
     Dates: start: 20140519, end: 20140520
  36. PREDONINE [Concomitant]
     Active Substance: PREDNISOLONE\PREDNISOLONE ACETATE\PREDNISOLONE SODIUM SUCCINATE
     Dosage: 9 MG, UNK
     Route: 048
     Dates: start: 20140821, end: 20141020
  37. RECOMODULIN [Concomitant]
     Active Substance: THROMBOMODULIN ALFA
     Dosage: 1920 IU, QD
     Route: 042
     Dates: start: 20140425, end: 20140425
  38. CLAFORAN [Concomitant]
     Active Substance: CEFOTAXIME SODIUM
     Indication: INFECTION PROPHYLAXIS
     Dosage: 350 MG, TID
     Route: 065
     Dates: start: 20140502, end: 20140508
  39. INDERAL [Concomitant]
     Active Substance: PROPRANOLOL HYDROCHLORIDE
     Indication: PRODUCT USED FOR UNKNOWN INDICATION
     Dosage: 10 MG, 1-2 TIME DAILY
     Route: 065
     Dates: start: 20140428, end: 20140609
  40. SEPAMIT [Concomitant]
     Indication: PRODUCT USED FOR UNKNOWN INDICATION
     Dosage: 1.25 MG, QD
     Route: 048
     Dates: start: 20140508, end: 20140609
  41. FUROSEMIDE. [Concomitant]
     Active Substance: FUROSEMIDE
     Dosage: 9.00 MG, QID
     Route: 042
     Dates: start: 20140511, end: 20140515
  42. FUROSEMIDE. [Concomitant]
     Active Substance: FUROSEMIDE
     Dosage: 2.40 MG/H, CONTINUANCE
     Route: 042
     Dates: start: 20140521, end: 20140521
  43. FUROSEMIDE. [Concomitant]
     Active Substance: FUROSEMIDE
     Dosage: 1.2MG/H, CONTINUANCE
     Route: 042
     Dates: start: 20140522, end: 20140603
  44. FUROSEMIDE. [Concomitant]
     Active Substance: FUROSEMIDE
     Dosage: 2.5 MG, BID
     Route: 048
     Dates: start: 20140604, end: 20140612
  45. RECOMODULIN [Concomitant]
     Active Substance: THROMBOMODULIN ALFA
     Indication: PRODUCT USED FOR UNKNOWN INDICATION
     Dosage: 1920 IU, QD
     Route: 042
     Dates: start: 20140326, end: 20140404
  46. PREDONINE [Concomitant]
     Active Substance: PREDNISOLONE\PREDNISOLONE ACETATE\PREDNISOLONE SODIUM SUCCINATE
     Dosage: 2.5 MG, BID
     Route: 042
     Dates: start: 20140503, end: 20140510
  47. PREDONINE [Concomitant]
     Active Substance: PREDNISOLONE\PREDNISOLONE ACETATE\PREDNISOLONE SODIUM SUCCINATE
     Dosage: 2.5 MG, BID
     Route: 042
     Dates: start: 20140516, end: 20140518
  48. PREDONINE [Concomitant]
     Active Substance: PREDNISOLONE\PREDNISOLONE ACETATE\PREDNISOLONE SODIUM SUCCINATE
     Dosage: 2.5 MG, BID
     Route: 042
     Dates: start: 20140523, end: 20140523

REACTIONS (5)
  - Pneumonia [Recovered/Resolved]
  - Pulmonary hypertension [Not Recovered/Not Resolved]
  - Platelet count decreased [Recovering/Resolving]
  - Hepatic function abnormal [Recovered/Resolved]
  - Pseudomonas infection [Recovered/Resolved]

NARRATIVE: CASE EVENT DATE: 20140511
